FAERS Safety Report 25504953 (Version 3)
Quarter: 2025Q3

REPORT INFORMATION
  Report Type: Report from Study
  Country: EU (occurrence: EU)
  Receive Date: 20250702
  Receipt Date: 20250729
  Transmission Date: 20251021
  Serious: Yes (Other)
  Sender: NOVARTIS
  Company Number: EU-002147023-NVSC2025DE103364

PATIENT
  Sex: Female
  Weight: 56 kg

DRUGS (22)
  1. COSENTYX [Suspect]
     Active Substance: SECUKINUMAB
     Indication: Axial spondyloarthritis
     Route: 065
     Dates: start: 20240522, end: 20240522
  2. COSENTYX [Suspect]
     Active Substance: SECUKINUMAB
     Route: 065
     Dates: start: 20240529, end: 20240529
  3. COSENTYX [Suspect]
     Active Substance: SECUKINUMAB
     Route: 065
     Dates: start: 20240605, end: 20240605
  4. COSENTYX [Suspect]
     Active Substance: SECUKINUMAB
     Route: 065
     Dates: start: 20240612, end: 20240612
  5. COSENTYX [Suspect]
     Active Substance: SECUKINUMAB
     Route: 065
     Dates: start: 20240619, end: 20240619
  6. COSENTYX [Suspect]
     Active Substance: SECUKINUMAB
     Route: 065
     Dates: start: 20240719, end: 20240719
  7. COSENTYX [Suspect]
     Active Substance: SECUKINUMAB
     Route: 065
     Dates: start: 20240819, end: 20240819
  8. COSENTYX [Suspect]
     Active Substance: SECUKINUMAB
     Route: 065
     Dates: start: 20240919, end: 20240919
  9. COSENTYX [Suspect]
     Active Substance: SECUKINUMAB
     Route: 065
     Dates: start: 20241019, end: 20241019
  10. COSENTYX [Suspect]
     Active Substance: SECUKINUMAB
     Route: 065
     Dates: start: 20241119, end: 20241119
  11. COSENTYX [Suspect]
     Active Substance: SECUKINUMAB
     Route: 065
     Dates: start: 20250119, end: 20250119
  12. COSENTYX [Suspect]
     Active Substance: SECUKINUMAB
     Route: 065
     Dates: start: 20250217, end: 20250217
  13. COSENTYX [Suspect]
     Active Substance: SECUKINUMAB
     Route: 065
     Dates: start: 20250219, end: 20250219
  14. COSENTYX [Suspect]
     Active Substance: SECUKINUMAB
     Route: 065
     Dates: start: 20250319, end: 20250319
  15. COSENTYX [Suspect]
     Active Substance: SECUKINUMAB
     Route: 065
     Dates: start: 20250419, end: 20250419
  16. COSENTYX [Suspect]
     Active Substance: SECUKINUMAB
     Route: 065
     Dates: start: 20250519, end: 20250519
  17. ETORICOXIB [Concomitant]
     Active Substance: ETORICOXIB
     Indication: Spondylitis
     Route: 048
     Dates: start: 20240508
  18. VITAMIN D [Concomitant]
     Active Substance: VITAMIN D NOS
     Indication: Vitamin D deficiency
     Dosage: 10000 IU, QW
     Route: 048
     Dates: start: 202401
  19. ACETYLCYSTEINE [Concomitant]
     Active Substance: ACETYLCYSTEINE
     Indication: Respiratory tract infection
     Dosage: UNK, QD (1X600, MORNING, 1-0-0)
     Route: 048
     Dates: start: 20240516, end: 20241203
  20. FLUTICASONE PROPIONATE\SALMETEROL XINAFOATE [Concomitant]
     Active Substance: FLUTICASONE PROPIONATE\SALMETEROL XINAFOATE
     Indication: Respiratory tract infection
     Dosage: UNK, BID (25/125 (1 PUFF), 1 PUFF-0-1 PUFF) (METERED AEROSOL)
     Route: 055
     Dates: start: 20240516, end: 20240524
  21. HERBALS [Concomitant]
     Active Substance: HERBALS
     Indication: Respiratory tract infection
     Dosage: UNK, TID
     Route: 048
     Dates: start: 20240516, end: 20241203
  22. CEFUROXIME AXETIL [Concomitant]
     Active Substance: CEFUROXIME AXETIL
     Indication: Tonsillitis
     Dosage: 600 MG, BID (1X 600 MG, MORNING AND EVENING, 1-0-1)
     Route: 048
     Dates: start: 20241129, end: 20241204

REACTIONS (1)
  - Iridocyclitis [Recovered/Resolved]

NARRATIVE: CASE EVENT DATE: 20250219
